FAERS Safety Report 7235903-6 (Version None)
Quarter: 2011Q1

REPORT INFORMATION
  Report Type: 
  Country: None (occurrence: None)
  Receive Date: 20110120
  Receipt Date: 20110117
  Transmission Date: 20110831
  Serious: Yes (Other)
  Sender: FDA-Public Use
  Company Number: GB-ABBOTT-10P-167-0686020-00

PATIENT
  Sex: Female

DRUGS (3)
  1. HYDROXYCHLOROQUINE SULFATE [Concomitant]
     Indication: RHEUMATOID ARTHRITIS
     Route: 048
     Dates: start: 20101109
  2. HUMIRA [Suspect]
     Indication: RHEUMATOID ARTHRITIS
     Route: 058
     Dates: start: 20080519
  3. HUMIRA [Suspect]

REACTIONS (6)
  - NEGATIVE THOUGHTS [None]
  - AMNESIA [None]
  - DEPRESSED MOOD [None]
  - CONFUSIONAL STATE [None]
  - MEMORY IMPAIRMENT [None]
  - SUICIDAL IDEATION [None]
